FAERS Safety Report 6877291-0 (Version None)
Quarter: 2010Q3

REPORT INFORMATION
  Report Type: 
  Country: None (occurrence: None)
  Receive Date: 20100714
  Receipt Date: 20100630
  Transmission Date: 20110219
  Serious: Yes (Other)
  Sender: FDA-Public Use
  Company Number: AEUSA201000246

PATIENT
  Sex: 0

DRUGS (1)
  1. IGIV (MANUFACTURER UNKNOWN) (10 PCT) [Suspect]
     Indication: PRODUCT USED FOR UNKNOWN INDICATION
     Dosage: IV
     Route: 042

REACTIONS (1)
  - NEUTROPENIA [None]
